FAERS Safety Report 9718104 (Version 1)
Quarter: 2013Q4

REPORT INFORMATION
  Report Type: Not Available
  Country: US (occurrence: US)
  Receive Date: 20131125
  Receipt Date: 20131125
  Transmission Date: 20140711
  Serious: No
  Sender: FDA-Public Use
  Company Number: US-VIVUS-2013V1000492

PATIENT
  Age: 52 Year
  Sex: Female
  Weight: 71.73 kg

DRUGS (18)
  1. QSYMIA 3.75MG/23MG [Suspect]
     Indication: PRODUCT USED FOR UNKNOWN INDICATION
     Route: 048
     Dates: start: 201301
  2. QSYMIA 7.5MG/46MG [Suspect]
     Indication: PRODUCT USED FOR UNKNOWN INDICATION
     Route: 048
     Dates: start: 201306
  3. VALIUM [Concomitant]
     Indication: PRODUCT USED FOR UNKNOWN INDICATION
     Route: 048
  4. PLAVIX [Concomitant]
     Indication: PRODUCT USED FOR UNKNOWN INDICATION
     Route: 048
  5. NEXIUM [Concomitant]
     Indication: PRODUCT USED FOR UNKNOWN INDICATION
     Route: 048
  6. METOPROLOL [Concomitant]
     Indication: PRODUCT USED FOR UNKNOWN INDICATION
     Route: 048
  7. LEVEMIR [Concomitant]
     Indication: DIABETES MELLITUS
     Route: 058
  8. ASPIRIN [Concomitant]
     Indication: PRODUCT USED FOR UNKNOWN INDICATION
     Route: 048
  9. NOVOLOG [Concomitant]
     Indication: DIABETES MELLITUS
     Route: 058
  10. NOVOLOG [Concomitant]
     Route: 058
  11. WELCHOL [Concomitant]
     Indication: BLOOD CHOLESTEROL INCREASED
     Route: 048
  12. TYLENOL WITH CODEINE #3 [Concomitant]
     Indication: PAIN
     Route: 048
  13. PHENERGAN [Concomitant]
     Indication: NAUSEA
  14. SEROQUEL [Concomitant]
     Indication: INSOMNIA
     Route: 048
  15. BENADRYL [Concomitant]
     Indication: HYPERSENSITIVITY
     Route: 048
  16. EPIPEN [Concomitant]
     Indication: HYPERSENSITIVITY
  17. DICYCLOMINE HCL [Concomitant]
     Indication: ABDOMINAL DISCOMFORT
     Route: 048
  18. BELLADONNA ALKALOIDS PHENOBARBITAL [Concomitant]
     Indication: ABDOMINAL DISCOMFORT

REACTIONS (8)
  - Chest pain [Recovered/Resolved]
  - Blood glucose fluctuation [Recovered/Resolved]
  - Energy increased [Recovered/Resolved]
  - Fatigue [Recovered/Resolved]
  - Feeling abnormal [Recovered/Resolved]
  - Irritability [Recovered/Resolved]
  - Dry mouth [Not Recovered/Not Resolved]
  - Drug dispensing error [Recovered/Resolved]
